APPROVED DRUG PRODUCT: ACYCLOVIR
Active Ingredient: ACYCLOVIR
Strength: 5%
Dosage Form/Route: OINTMENT;TOPICAL
Application: A206437 | Product #001
Applicant: CHARTWELL MOLECULAR HOLDINGS LLC
Approved: Jul 31, 2017 | RLD: No | RS: No | Type: DISCN